FAERS Safety Report 10914055 (Version 2)
Quarter: 2015Q2

REPORT INFORMATION
  Report Type: Spontaneous
  Country: DE (occurrence: DE)
  Receive Date: 20150313
  Receipt Date: 20150415
  Transmission Date: 20150821
  Serious: Yes (Death)
  Sender: FDA-Public Use
  Company Number: DE-TEVA-546001GER

PATIENT
  Age: 72 Year
  Sex: Female
  Weight: 95 kg

DRUGS (3)
  1. METFORMIN [Suspect]
     Active Substance: METFORMIN HYDROCHLORIDE
     Indication: TYPE 2 DIABETES MELLITUS
     Dosage: 2 DOSAGE FORMS DAILY; 1 DF = 0.5 TABLETS
     Route: 048
     Dates: start: 20100907, end: 20150204
  2. MTX HEXAL [Interacting]
     Active Substance: METHOTREXATE SODIUM
     Indication: POLYARTHRITIS
     Route: 048
     Dates: start: 2006, end: 20150204
  3. CLAVERSAL 500 [Concomitant]
     Indication: DIVERTICULITIS
     Route: 048
     Dates: start: 20130508

REACTIONS (3)
  - Drug interaction [Unknown]
  - Product odour abnormal [Unknown]
  - Death [Fatal]

NARRATIVE: CASE EVENT DATE: 20150204
